FAERS Safety Report 23114390 (Version 1)
Quarter: 2023Q4

REPORT INFORMATION
  Report Type: Spontaneous
  Country: US (occurrence: None)
  Receive Date: 20231026
  Receipt Date: 20231026
  Transmission Date: 20240109
  Serious: Yes (unspecified)
  Sender: FDA-Public Use
  Company Number: None

PATIENT
  Age: 56 Year
  Sex: Female
  Weight: 93 kg

DRUGS (7)
  1. PAXLOVID [Suspect]
     Active Substance: NIRMATRELVIR\RITONAVIR
     Indication: COVID-19
     Dosage: FREQUENCY : TWICE A DAY;?
     Route: 048
     Dates: start: 20231008, end: 20231010
  2. Dicyclomine 10 mg [Concomitant]
     Dates: start: 20230824
  3. XIFAXAN [Concomitant]
     Active Substance: RIFAXIMIN
     Dates: start: 20230330
  4. VENLAFAXINE HYDROCHLORIDE [Concomitant]
     Active Substance: VENLAFAXINE HYDROCHLORIDE
     Dates: start: 20220923
  5. TIZANIDINE [Concomitant]
     Active Substance: TIZANIDINE
     Dates: start: 20230113
  6. Naltrexone 4.5 mg [Concomitant]
     Dates: start: 20230120
  7. MOTEGRITY [Concomitant]
     Active Substance: PRUCALOPRIDE SUCCINATE
     Dates: start: 20230120

REACTIONS (2)
  - Drug hypersensitivity [None]
  - Stomatitis [None]

NARRATIVE: CASE EVENT DATE: 20231010
